FAERS Safety Report 9788756 (Version 1)
Quarter: 2013Q4

REPORT INFORMATION
  Report Type: Spontaneous
  Country: RU (occurrence: RU)
  Receive Date: 20131230
  Receipt Date: 20131230
  Transmission Date: 20140711
  Serious: Yes (Other)
  Sender: FDA-Public Use
  Company Number: PHHY2013RU152532

PATIENT
  Sex: Female

DRUGS (1)
  1. MIACALCIC [Suspect]
     Route: 006

REACTIONS (3)
  - Disease progression [Unknown]
  - Encopresis [Unknown]
  - Back pain [Unknown]
